FAERS Safety Report 16214920 (Version 1)
Quarter: 2019Q2

REPORT INFORMATION
  Report Type: Spontaneous
  Country: BE (occurrence: BE)
  Receive Date: 20190418
  Receipt Date: 20190418
  Transmission Date: 20190711
  Serious: Yes (Life-Threatening, Hospitalization)
  Sender: FDA-Public Use
  Company Number: BE-TEVA-2019-BE-1038150

PATIENT
  Age: 58 Year
  Sex: Female
  Weight: 68 kg

DRUGS (8)
  1. PACLITAXEL. [Suspect]
     Active Substance: PACLITAXEL
     Route: 042
  2. GEMCITABINE [Suspect]
     Active Substance: GEMCITABINE\GEMCITABINE HYDROCHLORIDE
     Dosage: IN 2014, THE PATIENT RELAPSED FROM OVARIAN CARCINOMA. THE PATIENT WAS TREATED WITH CARBOPLATIN AND G
     Route: 042
  3. PRAVASTATIN. [Concomitant]
     Active Substance: PRAVASTATIN
     Dosage: 40 MILLIGRAM DAILY;
     Route: 048
  4. CARBOPLATIN. [Suspect]
     Active Substance: CARBOPLATIN
     Route: 042
  5. L-THYROXINE CHRISTIAENS 25 MICROGRAM, TABLETTEN [Concomitant]
     Dosage: 25 MILLIGRAM DAILY;
     Route: 048
     Dates: start: 20180412
  6. OLMESARTAN [Concomitant]
     Active Substance: OLMESARTAN
     Indication: HYPERTENSION
     Dosage: 20 MILLIGRAM DAILY;
     Route: 048
     Dates: start: 20170126
  7. DUOTRAV [Concomitant]
     Active Substance: TIMOLOL MALEATE\TRAVOPROST
     Route: 047
  8. AVASTIN [Suspect]
     Active Substance: BEVACIZUMAB
     Dates: start: 20140602, end: 20181227

REACTIONS (5)
  - Cough [Unknown]
  - Pyrexia [Unknown]
  - Acute myeloid leukaemia [Unknown]
  - Nausea [Unknown]
  - Malaise [Unknown]

NARRATIVE: CASE EVENT DATE: 20190107
